FAERS Safety Report 6337090-5 (Version None)
Quarter: 2009Q3

REPORT INFORMATION
  Report Type: 
  Country: None (occurrence: None)
  Receive Date: 20090831
  Receipt Date: 20090819
  Transmission Date: 20100115
  Serious: Yes (Hospitalization)
  Sender: FDA-Public Use
  Company Number: 2009-02994

PATIENT
  Age: 68 Year
  Sex: Male
  Weight: 67.1 kg

DRUGS (8)
  1. VELCADE [Suspect]
     Indication: HEAD AND NECK CANCER
     Dosage: 1.3 MG/M2, IV BOLUS
     Route: 040
     Dates: start: 20081103, end: 20081204
  2. CISPLATIN [Suspect]
     Indication: HEAD AND NECK CANCER
     Dosage: 30 MG/M2, INTRAVENOUS
     Route: 042
     Dates: start: 20081103, end: 20081201
  3. ALLOPURINOL [Concomitant]
  4. ASPIRIN [Concomitant]
  5. INDAPAMIDE [Concomitant]
  6. ONDANSETRON [Concomitant]
  7. DARVOCET-N (PARACETAMOL, DEXTROPROPOXYPHENE NAPSILATE) [Concomitant]
  8. LORAZEPAM [Concomitant]

REACTIONS (11)
  - BLOOD ALBUMIN DECREASED [None]
  - BLOOD CALCIUM DECREASED [None]
  - DYSPNOEA [None]
  - HAEMATOCRIT DECREASED [None]
  - HAEMOGLOBIN DECREASED [None]
  - HYPOKALAEMIA [None]
  - HYPOMAGNESAEMIA [None]
  - METASTASES TO LUNG [None]
  - PLATELET COUNT DECREASED [None]
  - PNEUMONIA [None]
  - SINUS CONGESTION [None]
